FAERS Safety Report 20613591 (Version 1)
Quarter: 2022Q1

REPORT INFORMATION
  Report Type: Spontaneous
  Country: US (occurrence: US)
  Receive Date: 20220319
  Receipt Date: 20220319
  Transmission Date: 20220423
  Serious: No
  Sender: FDA-Public Use
  Company Number: US-AUROBINDO-AUR-APL-2021-011658

PATIENT
  Sex: Male

DRUGS (2)
  1. GABAPENTIN [Suspect]
     Active Substance: GABAPENTIN
     Indication: Neuralgia
     Dosage: 3 DOSAGE FORM, DAILY
     Route: 065
  2. GABAPENTIN [Suspect]
     Active Substance: GABAPENTIN
     Dosage: 6 DOSAGE FORM, DAILY
     Route: 065

REACTIONS (6)
  - Limb discomfort [Unknown]
  - Peripheral swelling [Unknown]
  - Gait disturbance [Unknown]
  - Intentional product use issue [Unknown]
  - Product colour issue [Unknown]
  - Drug ineffective [Unknown]
